FAERS Safety Report 24652898 (Version 1)
Quarter: 2024Q4

REPORT INFORMATION
  Report Type: Spontaneous
  Country: US (occurrence: US)
  Receive Date: 20241122
  Receipt Date: 20241122
  Transmission Date: 20250114
  Serious: Yes (Life-Threatening, Hospitalization, Other)
  Sender: PFIZER
  Company Number: US-PFIZER INC-PV202400150432

PATIENT
  Age: 16 Year
  Sex: Female

DRUGS (1)
  1. KETAMINE HYDROCHLORIDE [Suspect]
     Active Substance: KETAMINE HYDROCHLORIDE
     Dosage: UNK

REACTIONS (9)
  - Drug abuse [Not Recovered/Not Resolved]
  - Drug-induced liver injury [Not Recovered/Not Resolved]
  - Hepatic fibrosis [Not Recovered/Not Resolved]
  - End stage renal disease [Not Recovered/Not Resolved]
  - Glomerulonephritis [Not Recovered/Not Resolved]
  - IgA nephropathy [Not Recovered/Not Resolved]
  - Renal tubular atrophy [Not Recovered/Not Resolved]
  - Fibrosis [Not Recovered/Not Resolved]
  - Hepatic cirrhosis [Not Recovered/Not Resolved]
